FAERS Safety Report 4819506-6 (Version None)
Quarter: 2005Q4

REPORT INFORMATION
  Report Type: 
  Country: None (occurrence: None)
  Receive Date: 20051102
  Receipt Date: 20051102
  Transmission Date: 20060501
  Serious: Yes (Hospitalization)
  Sender: FDA-Public Use
  Company Number: None

PATIENT
  Age: 53 Year
  Sex: Female

DRUGS (1)
  1. NUBAIN [Suspect]
     Indication: PRURITUS
     Dosage: 10 MG Q 4 HS PRN IV
     Route: 042
     Dates: start: 20050621

REACTIONS (5)
  - ADVERSE DRUG REACTION [None]
  - ANAESTHETIC COMPLICATION [None]
  - ANGIONEUROTIC OEDEMA [None]
  - OEDEMA [None]
  - SWELLING [None]
